FAERS Safety Report 15170762 (Version 1)
Quarter: 2018Q3

REPORT INFORMATION
  Report Type: Spontaneous
  Country: US (occurrence: US)
  Receive Date: 20180622
  Receipt Date: 20180622
  Transmission Date: 20181010
  Serious: Yes (Disabling)
  Sender: FDA-Public Use
  Company Number: None

PATIENT
  Age: 58 Year
  Sex: Male
  Weight: 94.15 kg

DRUGS (5)
  1. HUMIRA [Suspect]
     Active Substance: ADALIMUMAB
     Indication: COLITIS
     Route: 058
     Dates: start: 20160211, end: 20180622
  2. VALACYCLOVIR [Concomitant]
     Active Substance: VALACYCLOVIR HYDROCHLORIDE
     Dates: start: 20170731, end: 20180622
  3. WARFARIN [Concomitant]
     Active Substance: WARFARIN
     Dates: start: 20100101, end: 20180622
  4. ASACOL HD [Concomitant]
     Active Substance: MESALAMINE
     Dates: start: 20120101, end: 20180622
  5. COLESTIPOL [Concomitant]
     Active Substance: COLESTIPOL
     Dates: start: 20180214, end: 20180622

REACTIONS (1)
  - Muscle strain [None]

NARRATIVE: CASE EVENT DATE: 20180502
